FAERS Safety Report 7759420-X (Version None)
Quarter: 2011Q3

REPORT INFORMATION
  Report Type: 
  Country: None (occurrence: None)
  Receive Date: 20110919
  Receipt Date: 20110913
  Transmission Date: 20111222
  Serious: Yes (Death, Other)
  Sender: FDA-Public Use
  Company Number: JP-ROCHE-762269

PATIENT
  Age: 75 Year
  Sex: Female

DRUGS (1)
  1. AVASTIN [Suspect]
     Dosage: NOTE: DOSAGE IS UNCERTAIN
     Route: 041

REACTIONS (3)
  - DISEASE PROGRESSION [None]
  - LEUKOENCEPHALOPATHY [None]
  - MUSCLE SPASMS [None]
